FAERS Safety Report 17943646 (Version 1)
Quarter: 2020Q2

REPORT INFORMATION
  Report Type: Spontaneous
  Country: US (occurrence: US)
  Receive Date: 20200625
  Receipt Date: 20200625
  Transmission Date: 20200714
  Serious: Yes (Other)
  Sender: FDA-Public Use
  Company Number: US-AKORN PHARMACEUTICALS-2020AKN00795

PATIENT
  Sex: Female
  Weight: 62.96 kg

DRUGS (4)
  1. SHINGRIX [Concomitant]
     Active Substance: RECOMBINANT VARICELLA ZOSTER VIRUS (VZV) GLYCOPROTEIN E
  2. MYORISAN [Suspect]
     Active Substance: ISOTRETINOIN
     Indication: ACNE
     Dosage: UNK
     Dates: start: 20200113, end: 20200611
  3. ZOLOFT [Concomitant]
     Active Substance: SERTRALINE HYDROCHLORIDE
  4. LINZESS [Concomitant]
     Active Substance: LINACLOTIDE

REACTIONS (2)
  - Depression [Recovering/Resolving]
  - No adverse event [Recovered/Resolved]

NARRATIVE: CASE EVENT DATE: 2020
